FAERS Safety Report 20840993 (Version 1)
Quarter: 2022Q2

REPORT INFORMATION
  Report Type: Spontaneous
  Country: US (occurrence: US)
  Receive Date: 20220517
  Receipt Date: 20220517
  Transmission Date: 20220721
  Serious: No
  Sender: FDA-Public Use
  Company Number: US-PFIZER INC-202101732590

PATIENT
  Age: 82 Year
  Sex: Female

DRUGS (1)
  1. DOFETILIDE [Suspect]
     Active Substance: DOFETILIDE
     Dosage: 25 MG

REACTIONS (4)
  - Memory impairment [Unknown]
  - Tremor [Unknown]
  - Muscular weakness [Unknown]
  - Fall [Unknown]
